FAERS Safety Report 7941480-4 (Version None)
Quarter: 2011Q4

REPORT INFORMATION
  Report Type: 
  Country: None (occurrence: None)
  Receive Date: 20111128
  Receipt Date: 20111116
  Transmission Date: 20120403
  Serious: Yes (Hospitalization)
  Sender: FDA-Public Use
  Company Number: JP-ASTELLAS-2011US007755

PATIENT
  Sex: Female

DRUGS (2)
  1. TARCEVA [Suspect]
     Indication: LUNG SQUAMOUS CELL CARCINOMA STAGE UNSPECIFIED
     Dosage: UNK
     Route: 048
     Dates: start: 20101201
  2. DOCETAXEL [Suspect]
     Indication: LUNG SQUAMOUS CELL CARCINOMA STAGE UNSPECIFIED
     Dosage: UNK
     Route: 042
     Dates: start: 20101201

REACTIONS (2)
  - BRONCHOPULMONARY ASPERGILLOSIS [None]
  - DISEASE PROGRESSION [None]
